FAERS Safety Report 24635975 (Version 1)
Quarter: 2024Q4

REPORT INFORMATION
  Report Type: Spontaneous
  Country: US (occurrence: US)
  Receive Date: 20241119
  Receipt Date: 20241119
  Transmission Date: 20250115
  Serious: No
  Sender: CATALYST PHARMA
  Company Number: US-CATALYST PHARMACEUTICALS-US-CATA-24-01239

PATIENT
  Age: 5 Year
  Sex: Male
  Weight: 17.687 kg

DRUGS (2)
  1. AGAMREE [Suspect]
     Active Substance: VAMOROLONE
     Indication: Duchenne muscular dystrophy
     Dosage: 2.6 ML
     Route: 048
     Dates: start: 20240719
  2. MULTIVITAMIN KIDS [Concomitant]
     Indication: Hypovitaminosis
     Dosage: 1 A DAY
     Route: 065

REACTIONS (4)
  - Retching [Recovered/Resolved]
  - Drooling [Recovered/Resolved]
  - Vomiting [Recovered/Resolved]
  - Product use complaint [Unknown]

NARRATIVE: CASE EVENT DATE: 20240701
